FAERS Safety Report 7005781-9 (Version None)
Quarter: 2010Q3

REPORT INFORMATION
  Report Type: 
  Country: None (occurrence: None)
  Receive Date: 20100921
  Receipt Date: 20100915
  Transmission Date: 20110219
  Serious: Yes (Death, Hospitalization, Other)
  Sender: FDA-Public Use
  Company Number: PHHY2009JP19704

PATIENT
  Sex: Female

DRUGS (8)
  1. GLEEVEC [Suspect]
     Indication: CHRONIC EOSINOPHILIC LEUKAEMIA
     Dosage: 100 MG/DAY
     Route: 048
     Dates: start: 20081123, end: 20081125
  2. STEROIDS NOS [Concomitant]
  3. PREDNISOLONE [Concomitant]
     Indication: CHRONIC EOSINOPHILIC LEUKAEMIA
     Dosage: 30 MG
     Route: 048
     Dates: start: 20081114
  4. PREDNISOLONE [Concomitant]
     Dosage: 80 MG
     Route: 048
     Dates: start: 20081114, end: 20081128
  5. PREDNISOLONE [Concomitant]
     Dosage: 40 MG
     Route: 048
     Dates: start: 20081114, end: 20081128
  6. PREDNISOLONE [Concomitant]
     Dosage: 30 MG
     Route: 048
     Dates: start: 20081114, end: 20081128
  7. HYDREA [Concomitant]
     Indication: CHRONIC EOSINOPHILIC LEUKAEMIA
     Dosage: 2000 MG
     Dates: start: 20081117, end: 20081122
  8. METHYLPREDNISOLONE [Concomitant]
     Indication: CHRONIC EOSINOPHILIC LEUKAEMIA
     Dosage: 500 MG
     Route: 048
     Dates: start: 20081122, end: 20081124

REACTIONS (17)
  - ANURIA [None]
  - BLOOD LACTATE DEHYDROGENASE INCREASED [None]
  - DISSEMINATED INTRAVASCULAR COAGULATION [None]
  - DYSPNOEA [None]
  - EOSINOPHILIC LEUKAEMIA [None]
  - GENERAL PHYSICAL HEALTH DETERIORATION [None]
  - HAEMODIALYSIS [None]
  - HAEMORRHAGE SUBCUTANEOUS [None]
  - MOUTH HAEMORRHAGE [None]
  - PANCYTOPENIA [None]
  - PETECHIAE [None]
  - PNEUMONIA [None]
  - PULMONARY HAEMORRHAGE [None]
  - RENAL FAILURE [None]
  - RESPIRATORY FAILURE [None]
  - TUMOUR LYSIS SYNDROME [None]
  - WHITE BLOOD CELL COUNT DECREASED [None]
